FAERS Safety Report 10912118 (Version 1)
Quarter: 2015Q1

REPORT INFORMATION
  Report Type: Report from Study
  Country: US (occurrence: US)
  Receive Date: 20150313
  Receipt Date: 20150313
  Transmission Date: 20150721
  Serious: Yes (Hospitalization)
  Sender: FDA-Public Use
  Company Number: US-JNJFOC-20150307011

PATIENT
  Age: 13 Year
  Sex: Female
  Weight: 41.1 kg

DRUGS (6)
  1. HUMIRA [Concomitant]
     Active Substance: ADALIMUMAB
     Route: 065
     Dates: start: 20131005
  2. VANCOMYCIN [Concomitant]
     Active Substance: VANCOMYCIN
     Route: 065
  3. PEPTAMEN [Concomitant]
     Route: 065
  4. PROBIOTICS [Concomitant]
     Active Substance: PROBIOTICS NOS
     Route: 065
  5. REMICADE [Suspect]
     Active Substance: INFLIXIMAB
     Indication: CROHN^S DISEASE
     Route: 042
     Dates: start: 20121219, end: 20130912
  6. HUMIRA [Concomitant]
     Active Substance: ADALIMUMAB
     Route: 065
     Dates: start: 20150208

REACTIONS (1)
  - Crohn^s disease [Recovered/Resolved]

NARRATIVE: CASE EVENT DATE: 20150203
